FAERS Safety Report 11914321 (Version 5)
Quarter: 2016Q1

REPORT INFORMATION
  Report Type: Spontaneous
  Country: US (occurrence: US)
  Receive Date: 20160113
  Receipt Date: 20160215
  Transmission Date: 20160526
  Serious: No
  Sender: FDA-Public Use
  Company Number: US-ASTRAZENECA-2015SF29476

PATIENT
  Age: 23012 Day
  Sex: Male
  Weight: 84.8 kg

DRUGS (9)
  1. BYDUREON [Suspect]
     Active Substance: EXENATIDE
     Indication: TYPE 2 DIABETES MELLITUS
     Dosage: 2 MG 4 COUNT
     Route: 065
  2. TESTSTOSTERONE [Concomitant]
     Dates: end: 201510
  3. VITAMIN B12 [Concomitant]
     Active Substance: CYANOCOBALAMIN
  4. BABY ASPIRIN [Concomitant]
     Active Substance: ASPIRIN
  5. LANTUS [Concomitant]
     Active Substance: INSULIN GLARGINE
  6. METFORMIN [Concomitant]
     Active Substance: METFORMIN HYDROCHLORIDE
  7. CINNAMON. [Concomitant]
     Active Substance: CINNAMON
  8. LISINOPRIL. [Concomitant]
     Active Substance: LISINOPRIL
  9. LEVOTHYROXINE. [Concomitant]
     Active Substance: LEVOTHYROXINE

REACTIONS (5)
  - Injection site pain [Unknown]
  - Underdose [Unknown]
  - Intentional product misuse [Unknown]
  - Product quality issue [Not Recovered/Not Resolved]
  - Injection site haemorrhage [Unknown]

NARRATIVE: CASE EVENT DATE: 20160111
